FAERS Safety Report 10288204 (Version 1)
Quarter: 2014Q3

REPORT INFORMATION
  Report Type: Spontaneous
  Country: US (occurrence: US)
  Receive Date: 20140709
  Receipt Date: 20140709
  Transmission Date: 20150326
  Serious: Yes (Other)
  Sender: FDA-Public Use
  Company Number: US-TEVA-492526USA

PATIENT
  Sex: Female

DRUGS (6)
  1. BETASERON [Suspect]
     Active Substance: INTERFERON BETA-1B
  2. REBIF [Suspect]
     Active Substance: INTERFERON BETA-1A
  3. TYSABRI [Suspect]
     Active Substance: NATALIZUMAB
  4. COPAXONE [Suspect]
     Active Substance: GLATIRAMER ACETATE
  5. AVONEX [Suspect]
     Active Substance: INTERFERON BETA-1A
  6. TECFIDERA [Suspect]
     Active Substance: DIMETHYL FUMARATE

REACTIONS (3)
  - Blindness unilateral [Unknown]
  - Adverse event [Unknown]
  - Throat tightness [Unknown]
